FAERS Safety Report 5685094-8 (Version None)
Quarter: 2008Q1

REPORT INFORMATION
  Report Type: 
  Country: None (occurrence: None)
  Receive Date: 20080327
  Receipt Date: 20080314
  Transmission Date: 20080703
  Serious: Yes (Other)
  Sender: FDA-Public Use
  Company Number: 2008006697

PATIENT
  Age: 57 Year
  Sex: Female
  Weight: 61.2356 kg

DRUGS (1)
  1. PURELL ORIGINAL (ETHYL ALCOHOL) [Suspect]
     Indication: ACCIDENTAL EXPOSURE
     Dosage: LITTLE SQUIRT, THREE TIMES A DAY. (3 IN 1 D), OPHTHALMIC
     Route: 047

REACTIONS (2)
  - ACCIDENTAL EXPOSURE [None]
  - EYE INJURY [None]
